FAERS Safety Report 4628648-X (Version None)
Quarter: 2005Q2

REPORT INFORMATION
  Report Type: 
  Country: None (occurrence: None)
  Receive Date: 20050404
  Receipt Date: 20050321
  Transmission Date: 20051028
  Serious: Yes (Other)
  Sender: FDA-Public Use
  Company Number: B0376136A

PATIENT
  Sex: 0

DRUGS (3)
  1. HYCAMTIN [Suspect]
     Dosage: 4.5 MG/M2 /CONTINUOUS / INTRAVENOUS;  SEE IMAGE
     Route: 042
  2. CYTARABINE [Suspect]
     Dosage: 2 G/M2/ CONTINUOUS/ INTRAVENOUS;  SEE IMAGE
     Route: 042
  3. MITOXANTRONE [Suspect]
     Dosage: 40 MG/M2 / INTRAVENOUS

REACTIONS (1)
  - PULMONARY HAEMORRHAGE [None]
